FAERS Safety Report 7360760-7 (Version None)
Quarter: 2011Q1

REPORT INFORMATION
  Report Type: 
  Country: None (occurrence: None)
  Receive Date: 20110318
  Receipt Date: 20100712
  Transmission Date: 20110831
  Serious: Yes (Hospitalization, Other)
  Sender: FDA-Public Use
  Company Number: US-BAYER-201016079NA

PATIENT
  Sex: Female
  Weight: 58.95 kg

DRUGS (7)
  1. DECONGESTANTS AND ANTIALLERGICS [Concomitant]
     Indication: INFLUENZA
     Dosage: UNK
     Dates: start: 20060201
  2. YAZ [Suspect]
     Indication: CONTRACEPTION
     Dosage: 1 UNK, UNK
     Route: 048
  3. YAZ [Suspect]
     Indication: ACNE
  4. AVELOX [Concomitant]
     Indication: INFLUENZA
     Dosage: UNK
     Dates: start: 20060201
  5. YASMIN [Suspect]
     Indication: CONTRACEPTION
     Dosage: UNK
     Route: 048
  6. YASMIN [Suspect]
     Indication: ACNE
  7. TAMIFLU [Concomitant]
     Indication: INFLUENZA
     Dosage: UNK
     Dates: start: 20060201

REACTIONS (2)
  - INJURY [None]
  - CEREBROVASCULAR ACCIDENT [None]
